FAERS Safety Report 8317814-8 (Version None)
Quarter: 2012Q2

REPORT INFORMATION
  Report Type: 
  Country: None (occurrence: None)
  Receive Date: 20120427
  Receipt Date: 20120419
  Transmission Date: 20120825
  Serious: Yes (Life-Threatening)
  Sender: FDA-Public Use
  Company Number: CN-PFIZER INC-2011078638

PATIENT
  Age: 54 Year
  Sex: Male
  Weight: 68 kg

DRUGS (2)
  1. AXITINIB [Suspect]
     Indication: METASTATIC RENAL CELL CARCINOMA
     Dosage: 5 MG, 2X/DAY
     Route: 048
     Dates: start: 20100702, end: 20110407
  2. CELECOXIB [Concomitant]
     Indication: CHEST PAIN
     Dosage: 0.2 G, 2X/DAY
     Route: 048
     Dates: start: 20110401

REACTIONS (2)
  - PYOPNEUMOTHORAX [None]
  - RENAL FAILURE ACUTE [None]
